FAERS Safety Report 8398315-8 (Version None)
Quarter: 2012Q2

REPORT INFORMATION
  Report Type: 
  Country: None (occurrence: None)
  Receive Date: 20120531
  Receipt Date: 20120522
  Transmission Date: 20120825
  Serious: Yes (Other)
  Sender: FDA-Public Use
  Company Number: US-ASTRAZENECA-2012SE33123

PATIENT
  Age: 56 Year
  Sex: Female

DRUGS (37)
  1. CATAPRES-TTS-1 [Concomitant]
     Indication: BLOOD PRESSURE INCREASED
  2. FISH OIL [Concomitant]
     Indication: BLOOD TRIGLYCERIDES INCREASED
  3. HYDROXINE HCL [Concomitant]
     Indication: PRURITUS
  4. DIFLUCAN [Concomitant]
     Indication: VAGINAL INFECTION
  5. FLEXERIL [Concomitant]
     Indication: PAIN IN EXTREMITY
  6. FLEXERIL [Concomitant]
     Indication: BACK PAIN
  7. FLONASE [Concomitant]
     Indication: MULTIPLE ALLERGIES
  8. HYDROCHLOROTHIAZIDE [Concomitant]
     Indication: OEDEMA
  9. ISOSORBIDE DINITRATE [Concomitant]
     Indication: HYPERTENSION
  10. LOSARTAN POTASSIUM [Concomitant]
     Indication: CEREBROVASCULAR ACCIDENT
  11. VITAMIN D2 [Concomitant]
     Indication: VITAMIN D DEFICIENCY
  12. SKELAXIN [Concomitant]
  13. PLAVIX [Concomitant]
     Indication: CORONARY ARTERY DISEASE
  14. PLAVIX [Concomitant]
     Indication: CEREBROVASCULAR ACCIDENT
  15. PHENERGAN [Concomitant]
     Indication: NAUSEA
  16. CRESTOR [Concomitant]
     Indication: HYPERLIPIDAEMIA
  17. CATAPRES-TTS-1 [Concomitant]
     Indication: DIARRHOEA
  18. FERROUS SULFATE TAB [Concomitant]
     Indication: MUSCLE SPASMS
  19. LOSARTAN POTASSIUM [Concomitant]
     Indication: HYPERTENSION
  20. NEXIUM [Concomitant]
     Indication: GASTROOESOPHAGEAL REFLUX DISEASE
  21. ALBUTEROL HCL [Concomitant]
     Indication: ASTHMA
     Dosage: 90 MCG ONE PUFF AS NEEDED
  22. NITROGLYCERIN [Concomitant]
     Indication: CHEST PAIN
     Route: 060
  23. LISINOPRIL [Suspect]
     Route: 048
  24. BYSTOLIC [Concomitant]
     Indication: HYPERTENSION
  25. FOLTX [Concomitant]
     Indication: VITAMIN B COMPLEX DEFICIENCY
  26. LOSARTAN POTASSIUM [Concomitant]
     Indication: RENAL DISORDER
  27. LUMIGAN [Concomitant]
     Indication: GLAUCOMA
  28. SAVELLA [Concomitant]
     Indication: DEPRESSION
  29. TRAZODONE HCL [Concomitant]
     Indication: SLEEP APNOEA SYNDROME
  30. SAVELLA [Concomitant]
     Indication: FIBROMYALGIA
  31. NORCO [Concomitant]
     Indication: PAIN
     Dosage: 10/325 MG EVERY FOUR HOURS
  32. XANAX [Concomitant]
     Indication: ANXIETY
  33. ASPIRIN [Concomitant]
     Indication: CORONARY ARTERY DISEASE
  34. ASPIRIN [Concomitant]
     Indication: CEREBROVASCULAR ACCIDENT
  35. HYDROCHLOROTHIAZIDE [Concomitant]
     Indication: BLOOD PRESSURE INCREASED
  36. MIRAPEX [Concomitant]
     Indication: MUSCLE SPASMS
  37. U500 HUMULIN REGULAR INSULIN [Concomitant]
     Indication: TYPE 2 DIABETES MELLITUS

REACTIONS (1)
  - ANGIOEDEMA [None]
